FAERS Safety Report 21855373 (Version 1)
Quarter: 2023Q1

REPORT INFORMATION
  Report Type: Spontaneous
  Country: US (occurrence: None)
  Receive Date: 20230112
  Receipt Date: 20230112
  Transmission Date: 20230418
  Serious: Yes (Other)
  Sender: FDA-Public Use
  Company Number: None

PATIENT
  Age: 73 Year
  Sex: Male
  Weight: 101.2 kg

DRUGS (1)
  1. ALBUKED [Suspect]
     Active Substance: ALBUMIN HUMAN
     Indication: Oedema peripheral
     Dosage: OTHER FREQUENCY : ONCE;?
     Route: 042

REACTIONS (11)
  - Tremor [None]
  - Chills [None]
  - Hypoxia [None]
  - Body temperature increased [None]
  - Sinus tachycardia [None]
  - Hypertension [None]
  - Oxygen saturation decreased [None]
  - Tachypnoea [None]
  - Arthralgia [None]
  - Groin pain [None]
  - Infusion related reaction [None]

NARRATIVE: CASE EVENT DATE: 20230110
